FAERS Safety Report 9067885 (Version 3)
Quarter: 2013Q2

REPORT INFORMATION
  Report Type: Report from Study
  Country: JP (occurrence: JP)
  Receive Date: 20130128
  Receipt Date: 20130409
  Transmission Date: 20140414
  Serious: Yes (Death, Life-Threatening)
  Sender: FDA-Public Use
  Company Number: JP-ROCHE-1183868

PATIENT
  Age: 87 Year
  Sex: Female

DRUGS (2)
  1. METHOXY POLYETHYLENE GLYCOL-EPOETIN BETA [Suspect]
     Indication: NEPHROGENIC ANAEMIA
     Route: 058
     Dates: start: 20111108, end: 20111208
  2. ARTIST [Concomitant]
     Route: 048

REACTIONS (2)
  - Localised infection [Fatal]
  - Gangrene [Not Recovered/Not Resolved]
